FAERS Safety Report 7409945-1 (Version None)
Quarter: 2011Q2

REPORT INFORMATION
  Report Type: 
  Country: None (occurrence: None)
  Receive Date: 20110412
  Receipt Date: 20110331
  Transmission Date: 20111010
  Serious: Yes (Hospitalization, Other)
  Sender: FDA-Public Use
  Company Number: PHHY2011CA28360

PATIENT
  Sex: Female

DRUGS (3)
  1. ACLASTA [Suspect]
     Indication: OSTEOPOROSIS
     Dosage: 5 MG,
     Route: 042
     Dates: start: 20080627
  2. ACLASTA [Suspect]
     Dosage: 5 MG,
     Route: 042
     Dates: start: 20090604
  3. ACLASTA [Suspect]
     Dosage: 5 MG,
     Route: 042
     Dates: start: 20100615

REACTIONS (4)
  - CARDIAC DISORDER [None]
  - OEDEMA PERIPHERAL [None]
  - THROMBOSIS [None]
  - ANGINA PECTORIS [None]
